FAERS Safety Report 9779727 (Version 2)
Quarter: 2014Q1

REPORT INFORMATION
  Report Type: Spontaneous
  Country: US (occurrence: US)
  Receive Date: 20131223
  Receipt Date: 20140219
  Transmission Date: 20141002
  Serious: Yes (Life-Threatening, Hospitalization, Disabling, Other)
  Sender: FDA-Public Use
  Company Number: US-VIIV HEALTHCARE LIMITED-A1053943A

PATIENT
  Age: 47 Year
  Sex: Female
  Weight: 88.2 kg

DRUGS (5)
  1. EPZICOM [Suspect]
     Indication: HIV INFECTION
     Dosage: 1TAB PER DAY
     Route: 048
     Dates: start: 201309
  2. TIVICAY [Suspect]
     Indication: HIV INFECTION
     Dosage: 15MG PER DAY
     Route: 048
     Dates: start: 201309
  3. HYDROCHLOROTHIAZIDE [Suspect]
     Indication: PRODUCT USED FOR UNKNOWN INDICATION
     Route: 065
  4. VITAMIN D [Suspect]
     Indication: PRODUCT USED FOR UNKNOWN INDICATION
     Route: 065
  5. BLOOD PRESSURE MEDICATION [Concomitant]

REACTIONS (11)
  - Immune reconstitution inflammatory syndrome [Recovering/Resolving]
  - Polyuria [Recovering/Resolving]
  - Fatigue [Recovering/Resolving]
  - Arrhythmia [Recovering/Resolving]
  - Blood calcium increased [Recovering/Resolving]
  - Blood creatinine increased [Recovering/Resolving]
  - Ill-defined disorder [Recovering/Resolving]
  - Renal failure acute [Recovering/Resolving]
  - Sarcoidosis [Unknown]
  - Pyrexia [Unknown]
  - Iron deficiency anaemia [Unknown]
